FAERS Safety Report 25141478 (Version 1)
Quarter: 2025Q1

REPORT INFORMATION
  Report Type: Spontaneous
  Country: US (occurrence: None)
  Receive Date: 20250329
  Receipt Date: 20250329
  Transmission Date: 20250408
  Serious: Yes (Disabling)
  Sender: FDA-CTU
  Company Number: None

PATIENT
  Age: 54 Year
  Sex: Female
  Weight: 49.05 kg

DRUGS (4)
  1. PHESGO [Suspect]
     Active Substance: HYALURONIDASE-ZZXF\PERTUZUMAB\TRASTUZUMAB
     Indication: Breast cancer
     Dates: start: 20230801, end: 20231101
  2. PYRIDOSTIGMINE [Concomitant]
     Active Substance: PYRIDOSTIGMINE
  3. BACLOFEN [Concomitant]
     Active Substance: BACLOFEN
  4. acetamenophin [Concomitant]

REACTIONS (4)
  - Mouth ulceration [None]
  - Pharyngeal ulceration [None]
  - Arthralgia [None]
  - Eating disorder [None]

NARRATIVE: CASE EVENT DATE: 20231101
